FAERS Safety Report 18982538 (Version 1)
Quarter: 2021Q1

REPORT INFORMATION
  Report Type: Not Available
  Country: None (occurrence: None)
  Receive Date: 20210308
  Receipt Date: 20210308
  Transmission Date: 20210420
  Serious: Yes (Hospitalization, Other)
  Sender: FDA-Public Use
  Company Number: GB-AKORN-162368

PATIENT
  Age: 49 Year
  Sex: Female

DRUGS (1)
  1. MYCOPHENOLATE MOFETIL FOR INJECTION, USP [Suspect]
     Active Substance: MYCOPHENOLATE MOFETIL

REACTIONS (5)
  - Malaise [Recovered/Resolved]
  - Drug-induced liver injury [Unknown]
  - Hepatic atrophy [Unknown]
  - Alanine aminotransferase increased [Recovered/Resolved]
  - Transaminases increased [Unknown]
